FAERS Safety Report 8435530-9 (Version None)
Quarter: 2012Q2

REPORT INFORMATION
  Report Type: 
  Country: None (occurrence: None)
  Receive Date: 20120608
  Receipt Date: 20120524
  Transmission Date: 20120825
  Serious: Yes (Hospitalization)
  Sender: FDA-Public Use
  Company Number: DSA_56365_2012

PATIENT
  Age: 40 Year
  Sex: Female

DRUGS (2)
  1. WELLBUTRIN XL [Suspect]
     Indication: ATTENTION DEFICIT/HYPERACTIVITY DISORDER
     Dosage: (DF)
     Dates: start: 20120401
  2. BUPROPION HCL [Concomitant]

REACTIONS (3)
  - DERMATITIS ALLERGIC [None]
  - OFF LABEL USE [None]
  - CONVULSION [None]
